FAERS Safety Report 6442564-2 (Version None)
Quarter: 2009Q4

REPORT INFORMATION
  Report Type: 
  Country: None (occurrence: None)
  Receive Date: 20091117
  Receipt Date: 20091105
  Transmission Date: 20100525
  Serious: Yes (Other)
  Sender: FDA-Public Use
  Company Number: DE-JNJFOC-20091102971

PATIENT
  Age: 42 Year
  Sex: Male

DRUGS (4)
  1. ETRAVIRINE [Suspect]
     Indication: HIV INFECTION
     Route: 048
  2. TDF [Concomitant]
     Indication: HIV INFECTION
     Route: 065
  3. FTC [Concomitant]
     Indication: HIV INFECTION
     Route: 065
  4. RALTEGRAVIR [Concomitant]
     Indication: HIV INFECTION
     Route: 065

REACTIONS (2)
  - GENOTYPE DRUG RESISTANCE TEST [None]
  - HEPATITIS C [None]
